FAERS Safety Report 5306926-9 (Version None)
Quarter: 2007Q2

REPORT INFORMATION
  Report Type: 
  Country: None (occurrence: None)
  Receive Date: 20070425
  Receipt Date: 20070423
  Transmission Date: 20071010
  Serious: Yes (Hospitalization)
  Sender: FDA-Public Use
  Company Number: JP-BRISTOL-MYERS SQUIBB COMPANY-13688882

PATIENT
  Age: 82 Year
  Sex: Male

DRUGS (12)
  1. MAXIPIME [Suspect]
     Indication: PNEUMONIA
     Route: 041
     Dates: start: 20070122, end: 20070129
  2. CLARITHROMYCIN [Suspect]
     Indication: NASOPHARYNGITIS
     Route: 048
     Dates: start: 20070111, end: 20070113
  3. GASTER D [Concomitant]
     Route: 048
     Dates: start: 20070122, end: 20070215
  4. AMBROXOL HCL [Concomitant]
     Route: 048
     Dates: start: 20070122, end: 20070215
  5. BROCIN [Concomitant]
     Route: 048
     Dates: start: 20070122, end: 20070215
  6. APRICOT KERNEL WATER [Concomitant]
     Route: 048
     Dates: start: 20070122, end: 20070215
  7. SENEGA ROOT [Concomitant]
     Route: 048
     Dates: start: 20070122, end: 20070215
  8. PROMAC [Concomitant]
     Route: 048
     Dates: start: 20070130, end: 20070220
  9. TIENAM [Concomitant]
     Dates: start: 20070129, end: 20070129
  10. TIENAM [Concomitant]
     Dates: start: 20070130, end: 20070131
  11. MYSLEE [Concomitant]
     Dosage: INTERRUPTED FROM 4-FEB-2007 UNTIL 15-FEB-2007
     Route: 048
     Dates: start: 20070122, end: 20070219
  12. SENNOSIDE [Concomitant]
     Dosage: 23-JAN-2007 TO 24-JAN, 26-JAN TO 28-JAN, 19-FEB TO 19-FEB-2007
     Route: 048
     Dates: start: 20070123, end: 20070219

REACTIONS (2)
  - DRUG HYPERSENSITIVITY [None]
  - EOSINOPHILIA [None]
